FAERS Safety Report 19613970 (Version 1)
Quarter: 2021Q3

REPORT INFORMATION
  Report Type: Spontaneous
  Country: AU (occurrence: AU)
  Receive Date: 20210727
  Receipt Date: 20210727
  Transmission Date: 20211014
  Serious: Yes (Hospitalization, Other)
  Sender: FDA-Public Use
  Company Number: AU-LUPIN PHARMACEUTICALS INC.-2021-12844

PATIENT
  Age: 56 Year
  Sex: Male

DRUGS (1)
  1. RAMIPRIL. [Suspect]
     Active Substance: RAMIPRIL
     Indication: DRUG THERAPY
     Dosage: UNK
     Route: 065

REACTIONS (1)
  - Angioedema [Recovered/Resolved]
